FAERS Safety Report 18268348 (Version 1)
Quarter: 2020Q3

REPORT INFORMATION
  Report Type: Spontaneous
  Country: AU (occurrence: AU)
  Receive Date: 20200915
  Receipt Date: 20200915
  Transmission Date: 20201103
  Serious: Yes (Hospitalization, Other)
  Sender: FDA-Public Use
  Company Number: AU-TAKEDA-2020TUS038600

PATIENT
  Age: 50 Year
  Sex: Male

DRUGS (1)
  1. ENTYVIO [Suspect]
     Active Substance: VEDOLIZUMAB
     Indication: INFLAMMATORY BOWEL DISEASE
     Dosage: UNK
     Route: 042
     Dates: start: 20191018, end: 20200506

REACTIONS (2)
  - Juvenile idiopathic arthritis [Recovered/Resolved]
  - Synovitis [Unknown]

NARRATIVE: CASE EVENT DATE: 20200423
